FAERS Safety Report 20701367 (Version 1)
Quarter: 2022Q2

REPORT INFORMATION
  Report Type: Other
  Country: None (occurrence: PL)
  Receive Date: 20220412
  Receipt Date: 20220412
  Transmission Date: 20220721
  Serious: Yes (Other)
  Sender: FDA-Public Use
  Company Number: PL-B.Braun Medical Inc.-2127642

PATIENT
  Age: 33 Year
  Sex: Female

DRUGS (1)
  1. HEPARIN SODIUM [Suspect]
     Active Substance: HEPARIN SODIUM

REACTIONS (2)
  - Exposure during pregnancy [Unknown]
  - Drug ineffective [Unknown]
